APPROVED DRUG PRODUCT: PERPHENAZINE
Active Ingredient: PERPHENAZINE
Strength: 8MG
Dosage Form/Route: TABLET;ORAL
Application: A213694 | Product #003 | TE Code: AB
Applicant: JUBILANT GENERICS LTD
Approved: Mar 18, 2025 | RLD: No | RS: No | Type: RX